FAERS Safety Report 9334401 (Version 1)
Quarter: 2013Q2

REPORT INFORMATION
  Report Type: Spontaneous
  Country: NO (occurrence: NO)
  Receive Date: 20130606
  Receipt Date: 20130606
  Transmission Date: 20140414
  Serious: Yes (Disabling)
  Sender: FDA-Public Use
  Company Number: NO-TEVA-409825ISR

PATIENT
  Age: 38 Year
  Sex: Male

DRUGS (4)
  1. METHOTREXATE [Suspect]
     Indication: PSORIATIC ARTHROPATHY
     Route: 048
     Dates: start: 2004, end: 2007
  2. ZYPREXA [Interacting]
     Indication: ANXIETY
  3. BUSPIRONE [Interacting]
     Indication: ANXIETY
     Dates: start: 2004, end: 2005
  4. EFEXOR DEPOT [Interacting]
     Indication: ANXIETY
     Dates: start: 2005, end: 2006

REACTIONS (5)
  - Cognitive disorder [Recovering/Resolving]
  - Social problem [Recovering/Resolving]
  - Tardive dyskinesia [Recovering/Resolving]
  - Apraxia [Recovering/Resolving]
  - Motor dysfunction [Recovering/Resolving]
